FAERS Safety Report 6219827-9 (Version None)
Quarter: 2009Q2

REPORT INFORMATION
  Report Type: 
  Country: None (occurrence: None)
  Receive Date: 20090609
  Receipt Date: 20090528
  Transmission Date: 20091009
  Serious: Yes (Other)
  Sender: FDA-Public Use
  Company Number: US-PFIZER INC-2009204851

PATIENT
  Sex: Female
  Weight: 65.317 kg

DRUGS (3)
  1. XALATAN [Suspect]
     Indication: GLAUCOMA
     Dosage: UNK
  2. TRAVATAN [Suspect]
     Indication: GLAUCOMA
  3. LUMIGAN [Suspect]
     Indication: GLAUCOMA

REACTIONS (12)
  - APPLICATION SITE EXFOLIATION [None]
  - DRUG INEFFECTIVE [None]
  - EPISTAXIS [None]
  - EYE DISORDER [None]
  - HEADACHE [None]
  - HYPERTENSION [None]
  - INTRAOCULAR PRESSURE INCREASED [None]
  - MUCOSAL INFLAMMATION [None]
  - PERIORBITAL DISORDER [None]
  - RHINALGIA [None]
  - SKIN HYPERPIGMENTATION [None]
  - TONGUE DRY [None]
